FAERS Safety Report 16873604 (Version 1)
Quarter: 2019Q4

REPORT INFORMATION
  Report Type: Spontaneous
  Country: CN (occurrence: CN)
  Receive Date: 20191001
  Receipt Date: 20191001
  Transmission Date: 20200122
  Serious: Yes (Death, Hospitalization, Other)
  Sender: FDA-Public Use
  Company Number: CN-ALVOGEN-2019-ALVOGEN-101499

PATIENT
  Age: 5 Day
  Sex: Female
  Weight: 1.66 kg

DRUGS (3)
  1. LABETALOL [Suspect]
     Active Substance: LABETALOL\LABETALOL HYDROCHLORIDE
     Indication: PRODUCT USED FOR UNKNOWN INDICATION
     Route: 064
  2. NIFEDIPINE. [Concomitant]
     Active Substance: NIFEDIPINE
     Indication: PRODUCT USED FOR UNKNOWN INDICATION
     Route: 064
  3. LABETALOL [Suspect]
     Active Substance: LABETALOL\LABETALOL HYDROCHLORIDE
     Indication: PRODUCT USED FOR UNKNOWN INDICATION
     Route: 064

REACTIONS (9)
  - Infantile apnoea [Unknown]
  - Acidosis [Unknown]
  - Drug withdrawal syndrome neonatal [Unknown]
  - Neonatal pneumonia [Unknown]
  - Hypoalbuminaemia [Unknown]
  - Sudden cardiac death [Fatal]
  - Electrolyte imbalance [Unknown]
  - Foetal exposure during pregnancy [Unknown]
  - Premature baby [Unknown]
